FAERS Safety Report 5602649-7 (Version None)
Quarter: 2008Q1

REPORT INFORMATION
  Report Type: 
  Country: None (occurrence: None)
  Receive Date: 20080125
  Receipt Date: 20080124
  Transmission Date: 20080703
  Serious: Yes (Other)
  Sender: FDA-Public Use
  Company Number: GB-BRISTOL-MYERS SQUIBB COMPANY-14053466

PATIENT
  Age: 33 Year
  Sex: Female

DRUGS (2)
  1. SUSTIVA [Suspect]
     Dates: start: 20070601, end: 20070801
  2. NEVIRAPINE [Suspect]
     Dates: start: 20070801

REACTIONS (3)
  - ABORTION INDUCED [None]
  - FOETAL DISORDER [None]
  - PREGNANCY [None]
